FAERS Safety Report 4447157-4 (Version None)
Quarter: 2004Q3

REPORT INFORMATION
  Report Type: 
  Country: None (occurrence: None)
  Receive Date: 20040813
  Receipt Date: 20040609
  Transmission Date: 20050211
  Serious: No
  Sender: FDA-Public Use
  Company Number: S04-USA-03637-01

PATIENT
  Sex: Female

DRUGS (9)
  1. NAMENDA [Suspect]
     Indication: DEMENTIA ALZHEIMER'S TYPE
     Dosage: 15 MG QD PO
     Route: 048
     Dates: start: 20040607
  2. NAMENDA [Suspect]
     Indication: DEMENTIA ALZHEIMER'S TYPE
     Dosage: 5 MG QD PO
     Route: 048
     Dates: start: 20040524, end: 20040530
  3. NAMENDA [Suspect]
     Indication: DEMENTIA ALZHEIMER'S TYPE
     Dosage: 10 MG QD PO
     Route: 048
     Dates: start: 20040531, end: 20040606
  4. CARDIZEM [Concomitant]
  5. FOSAMAX [Concomitant]
  6. PLAQUENIL [Concomitant]
  7. ASPIRIN [Concomitant]
  8. CALCIUM [Concomitant]
  9. MULTI-VITAMIN [Concomitant]

REACTIONS (2)
  - CONFUSIONAL STATE [None]
  - DIZZINESS [None]
